FAERS Safety Report 7000843-4 (Version None)
Quarter: 2010Q3

REPORT INFORMATION
  Report Type: 
  Country: None (occurrence: None)
  Receive Date: 20100920
  Receipt Date: 20091216
  Transmission Date: 20110219
  Serious: No
  Sender: FDA-Public Use
  Company Number: US-ASTRAZENECA-2009SE32382

PATIENT
  Age: 27881 Day
  Sex: Female
  Weight: 68 kg

DRUGS (11)
  1. SEROQUEL [Suspect]
     Indication: BIPOLAR DISORDER
     Route: 048
     Dates: start: 20091125
  2. SEROQUEL [Suspect]
     Route: 048
     Dates: start: 20091209
  3. TYLENOL [Concomitant]
     Indication: ARTHRITIS
     Dosage: 3-4 TIMES A WEEK AS NEEDED
  4. LEUCOVORIN CALCIUM [Concomitant]
     Indication: RHEUMATOID ARTHRITIS
  5. METHOTREXATE [Concomitant]
     Indication: RHEUMATOID ARTHRITIS
  6. SIMVASTATIN [Concomitant]
     Indication: HYPERCHOLESTEROLAEMIA
  7. LEVOTHYROXINE [Concomitant]
     Indication: HYPOTHYROIDISM
  8. OMEPRAZOLE [Concomitant]
     Indication: GASTROOESOPHAGEAL REFLUX DISEASE
  9. DILTIAZEM [Concomitant]
     Indication: CARDIAC DISORDER
     Route: 048
  10. XANAX [Concomitant]
     Indication: DEPRESSION
     Dosage: TID
     Route: 048
  11. CYMBALTA [Concomitant]
     Indication: DEPRESSION
     Route: 048

REACTIONS (5)
  - DIZZINESS [None]
  - DRY EYE [None]
  - DRY MOUTH [None]
  - GAIT DISTURBANCE [None]
  - WRONG TECHNIQUE IN DRUG USAGE PROCESS [None]
